FAERS Safety Report 9343713 (Version 1)
Quarter: 2013Q2

REPORT INFORMATION
  Report Type: Spontaneous
  Country: JP (occurrence: JP)
  Receive Date: 20130612
  Receipt Date: 20130612
  Transmission Date: 20140414
  Serious: Yes (Hospitalization)
  Sender: FDA-Public Use
  Company Number: PHHY2013JP059096

PATIENT
  Age: 66 Year
  Sex: Female

DRUGS (1)
  1. LOCHOL [Suspect]
     Indication: DYSLIPIDAEMIA
     Dosage: 30 MG, DAILY
     Route: 048
     Dates: start: 20130411, end: 20130509

REACTIONS (1)
  - Liver disorder [Recovering/Resolving]
